FAERS Safety Report 15291217 (Version 2)
Quarter: 2018Q3

REPORT INFORMATION
  Report Type: Spontaneous
  Country: US (occurrence: US)
  Receive Date: 20180817
  Receipt Date: 20180924
  Transmission Date: 20181010
  Serious: No
  Sender: FDA-Public Use
  Company Number: PHEH2018US033082

PATIENT
  Age: 69 Year
  Sex: Female

DRUGS (1)
  1. TIMOLOL. [Suspect]
     Active Substance: TIMOLOL
     Indication: PRODUCT USED FOR UNKNOWN INDICATION
     Route: 047

REACTIONS (3)
  - Liquid product physical issue [Unknown]
  - Asthenia [Unknown]
  - Product dropper issue [Unknown]
